FAERS Safety Report 5488956-X (Version None)
Quarter: 2007Q4

REPORT INFORMATION
  Report Type: 
  Country: None (occurrence: None)
  Receive Date: 20071016
  Receipt Date: 20071001
  Transmission Date: 20080405
  Serious: Yes (Hospitalization)
  Sender: FDA-Public Use
  Company Number: 6038487

PATIENT
  Age: 73 Year
  Sex: Female

DRUGS (9)
  1. GLUCOPHAGE [Suspect]
     Indication: TYPE 2 DIABETES MELLITUS
     Dosage: 3000 MG; ORAL
     Route: 048
  2. CRESTOR [Suspect]
     Indication: HYPERCHOLESTEROLAEMIA
     Dosage: 10 MG (10 MG, 1 IN 1 D); ORAL
     Route: 048
     Dates: start: 20061101, end: 20070914
  3. DAONIL (5 MG, TABLET) (GLIBENCLAMIDE) [Suspect]
     Indication: TYPE 2 DIABETES MELLITUS
     Dosage: 20 MG (5 MG, 4 IN 1 D); ORAL
     Route: 048
     Dates: end: 20070913
  4. ACARBOSE [Suspect]
     Indication: TYPE 2 DIABETES MELLITUS
     Dosage: 300 MG (100 MG, 3 IN 1 D); ORAL
     Route: 048
     Dates: end: 20070913
  5. AMLODIPINE BESYLATE [Suspect]
     Indication: TYPE 2 DIABETES MELLITUS
     Dosage: 5 MG (5 MG, 1 IN 1 D); ORAL
     Route: 048
     Dates: start: 20040101, end: 20070913
  6. SECTRAL [Concomitant]
  7. LEXOMIL (BROMAZEPAM) [Concomitant]
  8. IMOVANE (ZOPICLONE) [Concomitant]
  9. ASPIRIN [Concomitant]

REACTIONS (4)
  - CYTOLYTIC HEPATITIS [None]
  - DIABETES MELLITUS INADEQUATE CONTROL [None]
  - HEPATIC STEATOSIS [None]
  - RENAL FAILURE [None]
